FAERS Safety Report 25311818 (Version 1)
Quarter: 2025Q2

REPORT INFORMATION
  Report Type: Spontaneous
  Country: IN (occurrence: IN)
  Receive Date: 20250514
  Receipt Date: 20250514
  Transmission Date: 20250716
  Serious: Yes (Death, Hospitalization)
  Sender: MYLAN
  Company Number: IN-MYLANLABS-2025M1040243

PATIENT
  Age: 5 Decade
  Sex: Male

DRUGS (44)
  1. DEXAMETHASONE [Suspect]
     Active Substance: DEXAMETHASONE
     Indication: Plasma cell myeloma
  2. DEXAMETHASONE [Suspect]
     Active Substance: DEXAMETHASONE
     Indication: Neurotoxicity
     Route: 065
  3. DEXAMETHASONE [Suspect]
     Active Substance: DEXAMETHASONE
     Route: 065
  4. DEXAMETHASONE [Suspect]
     Active Substance: DEXAMETHASONE
  5. BORTEZOMIB [Suspect]
     Active Substance: BORTEZOMIB
     Indication: Plasma cell myeloma
  6. BORTEZOMIB [Suspect]
     Active Substance: BORTEZOMIB
     Route: 065
  7. BORTEZOMIB [Suspect]
     Active Substance: BORTEZOMIB
     Route: 065
  8. BORTEZOMIB [Suspect]
     Active Substance: BORTEZOMIB
  9. THALIDOMIDE [Suspect]
     Active Substance: THALIDOMIDE
     Indication: Plasma cell myeloma
  10. THALIDOMIDE [Suspect]
     Active Substance: THALIDOMIDE
     Route: 065
  11. THALIDOMIDE [Suspect]
     Active Substance: THALIDOMIDE
     Route: 065
  12. THALIDOMIDE [Suspect]
     Active Substance: THALIDOMIDE
  13. ANAKINRA [Suspect]
     Active Substance: ANAKINRA
     Indication: Neurotoxicity
  14. ANAKINRA [Suspect]
     Active Substance: ANAKINRA
     Route: 065
  15. ANAKINRA [Suspect]
     Active Substance: ANAKINRA
     Route: 065
  16. ANAKINRA [Suspect]
     Active Substance: ANAKINRA
  17. ELRANATAMAB [Concomitant]
     Active Substance: ELRANATAMAB
     Indication: Plasma cell myeloma
  18. ELRANATAMAB [Concomitant]
     Active Substance: ELRANATAMAB
     Route: 065
  19. ELRANATAMAB [Concomitant]
     Active Substance: ELRANATAMAB
     Route: 065
  20. ELRANATAMAB [Concomitant]
     Active Substance: ELRANATAMAB
  21. GANCICLOVIR [Concomitant]
     Active Substance: GANCICLOVIR
     Indication: Cytomegalovirus infection reactivation
  22. GANCICLOVIR [Concomitant]
     Active Substance: GANCICLOVIR
     Route: 065
  23. GANCICLOVIR [Concomitant]
     Active Substance: GANCICLOVIR
     Route: 065
  24. GANCICLOVIR [Concomitant]
     Active Substance: GANCICLOVIR
  25. VALGANCICLOVIR [Concomitant]
     Active Substance: VALGANCICLOVIR
     Indication: Cytomegalovirus infection reactivation
  26. VALGANCICLOVIR [Concomitant]
     Active Substance: VALGANCICLOVIR
     Route: 065
  27. VALGANCICLOVIR [Concomitant]
     Active Substance: VALGANCICLOVIR
     Route: 065
  28. VALGANCICLOVIR [Concomitant]
     Active Substance: VALGANCICLOVIR
  29. Immunoglobulin [Concomitant]
     Indication: Hypogammaglobulinaemia
  30. Immunoglobulin [Concomitant]
     Route: 042
  31. Immunoglobulin [Concomitant]
     Route: 042
  32. Immunoglobulin [Concomitant]
  33. CYCLOPHOSPHAMIDE [Concomitant]
     Active Substance: CYCLOPHOSPHAMIDE
     Indication: Plasma cell myeloma
  34. CYCLOPHOSPHAMIDE [Concomitant]
     Active Substance: CYCLOPHOSPHAMIDE
     Route: 065
  35. CYCLOPHOSPHAMIDE [Concomitant]
     Active Substance: CYCLOPHOSPHAMIDE
     Route: 065
  36. CYCLOPHOSPHAMIDE [Concomitant]
     Active Substance: CYCLOPHOSPHAMIDE
  37. DARATUMUMAB [Concomitant]
     Active Substance: DARATUMUMAB
     Indication: Plasma cell myeloma
  38. DARATUMUMAB [Concomitant]
     Active Substance: DARATUMUMAB
     Route: 065
  39. DARATUMUMAB [Concomitant]
     Active Substance: DARATUMUMAB
     Route: 065
  40. DARATUMUMAB [Concomitant]
     Active Substance: DARATUMUMAB
  41. LENALIDOMIDE [Concomitant]
     Active Substance: LENALIDOMIDE
     Indication: Plasma cell myeloma
  42. LENALIDOMIDE [Concomitant]
     Active Substance: LENALIDOMIDE
     Route: 065
  43. LENALIDOMIDE [Concomitant]
     Active Substance: LENALIDOMIDE
     Route: 065
  44. LENALIDOMIDE [Concomitant]
     Active Substance: LENALIDOMIDE

REACTIONS (1)
  - Drug ineffective [Fatal]
